FAERS Safety Report 22135660 (Version 1)
Quarter: 2023Q1

REPORT INFORMATION
  Report Type: Spontaneous
  Country: None (occurrence: AU)
  Receive Date: 20230324
  Receipt Date: 20230324
  Transmission Date: 20230417
  Serious: Yes (Other)
  Sender: FDA-Public Use
  Company Number: AU-Nova Laboratories Limited-2139507

PATIENT
  Age: 4 Year
  Sex: Female

DRUGS (11)
  1. PURIXAN [Suspect]
     Active Substance: MERCAPTOPURINE
     Indication: Product used for unknown indication
  2. METHOTREXATE SODIUM [Suspect]
     Active Substance: METHOTREXATE SODIUM
  3. DOXORUBICIN HYDROCHLORIDE [Suspect]
     Active Substance: DOXORUBICIN HYDROCHLORIDE
  4. CYCLOPHOSPHAMIDE [Suspect]
     Active Substance: CYCLOPHOSPHAMIDE
  5. ASPARAGINASE [Suspect]
     Active Substance: ASPARAGINASE
  6. PREDNISOLONE [Suspect]
     Active Substance: PREDNISOLONE
  7. VINCRISTINE SULFATE [Suspect]
     Active Substance: VINCRISTINE SULFATE
  8. THIOGUANINE ANHYDROUS [Suspect]
     Active Substance: THIOGUANINE ANHYDROUS
  9. DAUNORUBICIN [Suspect]
     Active Substance: DAUNORUBICIN
  10. DEXAMETHASONE SODIUM PHOSPHATE [Suspect]
     Active Substance: DEXAMETHASONE SODIUM PHOSPHATE
  11. CYTARABINE [Suspect]
     Active Substance: CYTARABINE

REACTIONS (1)
  - Central hypothyroidism [Unknown]
